FAERS Safety Report 14506772 (Version 2)
Quarter: 2018Q1

REPORT INFORMATION
  Report Type: Report from Study
  Country: BR (occurrence: BR)
  Receive Date: 20180208
  Receipt Date: 20180323
  Transmission Date: 20180509
  Serious: Yes (Other)
  Sender: FDA-Public Use
  Company Number: PHHY2018BR020316

PATIENT
  Sex: Male
  Weight: 73 kg

DRUGS (1)
  1. EXELON PATCH [Suspect]
     Active Substance: RIVASTIGMINE
     Indication: MEMORY IMPAIRMENT
     Dosage: 4.6 MG, QD PATCH 5 (CM2)
     Route: 062
     Dates: start: 2017

REACTIONS (4)
  - Inguinal hernia [Recovering/Resolving]
  - Urinary tract disorder [Unknown]
  - Drug ineffective [Not Recovered/Not Resolved]
  - Testicular pain [Recovering/Resolving]
